FAERS Safety Report 14935131 (Version 1)
Quarter: 2018Q2

REPORT INFORMATION
  Report Type: Spontaneous
  Country: US (occurrence: US)
  Receive Date: 20180506
  Receipt Date: 20180506
  Transmission Date: 20180711
  Serious: Yes (Disabling)
  Sender: FDA-Public Use
  Company Number: None

PATIENT
  Age: 33 Year
  Sex: Male
  Weight: 69.75 kg

DRUGS (5)
  1. CIPROFLOXACIN 500MG FLUOROQUINOLONE [Suspect]
     Active Substance: CIPROFLOXACIN
     Indication: URINARY TRACT INFECTION
     Dosage: ?          QUANTITY:1 DF DOSAGE FORM;?
     Route: 048
     Dates: start: 20180420, end: 20180421
  2. CIPROFLOXACIN 500MG FLUOROQUINOLONE [Suspect]
     Active Substance: CIPROFLOXACIN
     Indication: ESCHERICHIA INFECTION
     Dosage: ?          QUANTITY:1 DF DOSAGE FORM;?
     Route: 048
     Dates: start: 20180420, end: 20180421
  3. CIPROFLOXACIN 500MG FLUOROQUINOLONE [Suspect]
     Active Substance: CIPROFLOXACIN
     Indication: KIDNEY INFECTION
     Dosage: ?          QUANTITY:1 DF DOSAGE FORM;?
     Route: 048
     Dates: start: 20180420, end: 20180421
  4. CENTRUM MULTIVITAMIN [Concomitant]
  5. PROBIOTIC [Concomitant]
     Active Substance: PROBIOTICS NOS

REACTIONS (3)
  - Tendon pain [None]
  - Muscle spasms [None]
  - Inflammation [None]

NARRATIVE: CASE EVENT DATE: 20180420
